FAERS Safety Report 5395350-9 (Version None)
Quarter: 2007Q3

REPORT INFORMATION
  Report Type: 
  Country: None (occurrence: None)
  Receive Date: 20070724
  Receipt Date: 20070713
  Transmission Date: 20080115
  Serious: Yes (Other)
  Sender: FDA-Public Use
  Company Number: JP-SANOFI-SYNTHELABO-A01200707337

PATIENT
  Sex: Female
  Weight: 42 kg

DRUGS (5)
  1. TICLOPIDINE HCL [Concomitant]
     Indication: THROMBOSIS PROPHYLAXIS
     Route: 048
     Dates: start: 20050705, end: 20070612
  2. ASPIRIN [Concomitant]
     Indication: THROMBOSIS PROPHYLAXIS
     Route: 048
     Dates: start: 20050705, end: 20070612
  3. NILDILART [Concomitant]
     Indication: HYPERTENSION
     Route: 048
     Dates: start: 20050705
  4. CANDESARTAN CILEXETIL [Concomitant]
     Indication: HYPERTENSION
     Route: 048
     Dates: start: 20050705
  5. PLAVIX [Suspect]
     Indication: CEREBRAL INFARCTION
     Route: 048
     Dates: start: 20070613, end: 20070613

REACTIONS (1)
  - MENTAL DISORDER [None]
